FAERS Safety Report 12012526 (Version 1)
Quarter: 2016Q1

REPORT INFORMATION
  Report Type: Spontaneous
  Country: UG (occurrence: UG)
  Receive Date: 20160205
  Receipt Date: 20160205
  Transmission Date: 20160526
  Serious: Yes (Other)
  Sender: FDA-Public Use
  Company Number: UG-ABBVIE-16P-165-1552072-00

PATIENT
  Age: 37 Year
  Sex: Female

DRUGS (3)
  1. KALETRA [Suspect]
     Active Substance: LOPINAVIR\RITONAVIR
     Indication: HIV INFECTION
     Dosage: FIRST TRIMESTER EXPOSURE
     Route: 048
     Dates: start: 20110420
  2. LAMIVUDINE W/TENOFOVIR DISOPROXIL FUMARATE [Suspect]
     Active Substance: LAMIVUDINE\TENOFOVIR DISOPROXIL FUMARATE
     Indication: HIV INFECTION
     Dosage: FIRST TRIMESTER EXPOSURE
     Route: 048
     Dates: start: 20110616
  3. RALTEGRAVIR. [Suspect]
     Active Substance: RALTEGRAVIR
     Indication: HIV INFECTION
     Dosage: FIRST TRIMESTER EXPOSURE
     Route: 048
     Dates: start: 20110420, end: 20110615

REACTIONS (3)
  - Foetal death [Unknown]
  - Abortion induced [Unknown]
  - Exposure during pregnancy [Unknown]

NARRATIVE: CASE EVENT DATE: 20110620
